FAERS Safety Report 9605862 (Version 1)
Quarter: 2013Q4

REPORT INFORMATION
  Report Type: Report from Study
  Country: BR (occurrence: BR)
  Receive Date: 20131008
  Receipt Date: 20131008
  Transmission Date: 20140711
  Serious: Yes (Other)
  Sender: FDA-Public Use
  Company Number: PHHY2013BR111627

PATIENT
  Sex: Female
  Weight: 85 kg

DRUGS (8)
  1. DIOVAN HCT [Suspect]
     Indication: HYPERTENSION
     Dosage: 1 DF (160MG VALS/80MG HCT), DAILY
     Route: 048
     Dates: start: 2000
  2. DIOVAN [Suspect]
     Indication: HYPERTENSION
     Dosage: 1 DF (160 MG VALS), DAILY
     Route: 048
  3. GLIFAGE [Concomitant]
     Indication: DIABETES MELLITUS
     Dosage: 1 DF (500MG) DAILY
     Route: 048
  4. ATENOLOL [Concomitant]
     Indication: CARDIAC VALVE DISEASE
     Dosage: 2 DF(25MG) DAILY
     Route: 048
  5. LEXOTAN [Concomitant]
     Indication: NERVOUSNESS
     Dosage: 0.5 DF (3MG) DAILY
     Route: 048
  6. HYDROCHLOROTHIAZIDE [Concomitant]
     Indication: HYPERTENSION
     Dosage: 1 DF (25MG) DAILY
     Route: 048
     Dates: start: 1975
  7. ARTROLIVE [Concomitant]
     Indication: FRACTURED COCCYX
     Dosage: 1 DF, DAILY
     Route: 048
  8. CENTRUM [Concomitant]
     Indication: VITAMIN SUPPLEMENTATION
     Dosage: 1 DF, DAILY
     Route: 048

REACTIONS (7)
  - Cardiac valve disease [Not Recovered/Not Resolved]
  - Labyrinthitis [Not Recovered/Not Resolved]
  - Sinusitis [Not Recovered/Not Resolved]
  - Dyspnoea [Not Recovered/Not Resolved]
  - Blood pressure systolic increased [Recovered/Resolved]
  - Blood pressure diastolic decreased [Recovered/Resolved]
  - Nervousness [Not Recovered/Not Resolved]
